FAERS Safety Report 7336776-3 (Version None)
Quarter: 2011Q1

REPORT INFORMATION
  Report Type: 
  Country: None (occurrence: None)
  Receive Date: 20110308
  Receipt Date: 20110223
  Transmission Date: 20110831
  Serious: No
  Sender: FDA-Public Use
  Company Number: US-BIOGENIDEC-2011BI007316

PATIENT
  Sex: Female

DRUGS (1)
  1. TYSABRI [Suspect]
     Indication: MULTIPLE SCLEROSIS
     Route: 042
     Dates: start: 20080602

REACTIONS (6)
  - EATING DISORDER [None]
  - HAEMORRHOIDS [None]
  - NASOPHARYNGITIS [None]
  - BLOOD PRESSURE DECREASED [None]
  - MALAISE [None]
  - CONFUSIONAL STATE [None]
